FAERS Safety Report 19415263 (Version 2)
Quarter: 2021Q2

REPORT INFORMATION
  Report Type: Other
  Country: US (occurrence: US)
  Receive Date: 20210615
  Receipt Date: 20210629
  Transmission Date: 20210717
  Serious: Yes (Other)
  Sender: FDA-Public Use
  Company Number: US-ROCHE-2844832

PATIENT

DRUGS (2)
  1. ATEZOLIZUMAB. [Suspect]
     Active Substance: ATEZOLIZUMAB
     Indication: TRIPLE NEGATIVE BREAST CANCER
     Dosage: FOR 4 CYCLES
     Route: 042
  2. NAB?PACLITAXEL [Suspect]
     Active Substance: PACLITAXEL
     Indication: TRIPLE NEGATIVE BREAST CANCER
     Dosage: FOR 12 CYCLES
     Route: 042

REACTIONS (8)
  - Neutropenia [Unknown]
  - Anaemia [Unknown]
  - Immune-mediated nephritis [Unknown]
  - Pain [Unknown]
  - Adrenal insufficiency [Unknown]
  - Immune-mediated hepatitis [Unknown]
  - Peripheral sensory neuropathy [Unknown]
  - Vomiting [Unknown]
